FAERS Safety Report 8625485-6 (Version None)
Quarter: 2012Q3

REPORT INFORMATION
  Report Type: 
  Country: None (occurrence: None)
  Receive Date: 20120827
  Receipt Date: 20120823
  Transmission Date: 20120928
  Serious: Yes (Other)
  Sender: FDA-Public Use
  Company Number: US-ROCHE-1065790

PATIENT
  Sex: Male
  Weight: 88.53 kg

DRUGS (2)
  1. ACCUTANE [Suspect]
     Indication: ROSACEA
  2. ACCUTANE [Suspect]
     Indication: ACNE
     Dates: start: 19970627, end: 19970916

REACTIONS (3)
  - COLITIS ULCERATIVE [None]
  - INFLAMMATORY BOWEL DISEASE [None]
  - HAEMORRHOIDS [None]
